FAERS Safety Report 5795000-3 (Version None)
Quarter: 2008Q2

REPORT INFORMATION
  Report Type: 
  Country: None (occurrence: None)
  Receive Date: 20080630
  Receipt Date: 20080312
  Transmission Date: 20081010
  Serious: No
  Sender: FDA-Public Use
  Company Number: US-BRISTOL-MYERS SQUIBB COMPANY-14049258

PATIENT
  Age: 71 Year
  Sex: Female
  Weight: 75 kg

DRUGS (3)
  1. ORENCIA [Suspect]
     Indication: RHEUMATOID ARTHRITIS
     Dosage: LOT#12INF:MUES31A,MUES32A,7F23806,MUK539A,7J2893,7H26114.DATES:5/30/7,6/28/7,7/26/7,8/23/7,9/20/7.
     Route: 042
     Dates: start: 20070501
  2. ACCUPRIL [Concomitant]
  3. LOPRESSOR [Concomitant]

REACTIONS (1)
  - DRUG INEFFECTIVE [None]
